FAERS Safety Report 8596980-3 (Version None)
Quarter: 2012Q3

REPORT INFORMATION
  Report Type: 
  Country: None (occurrence: None)
  Receive Date: 20120815
  Receipt Date: 20120803
  Transmission Date: 20120928
  Serious: Yes (Death, Hospitalization)
  Sender: FDA-Public Use
  Company Number: PL-SPECTRUM PHARMACEUTICALS, INC.-12-Z-PL-00119

PATIENT

DRUGS (4)
  1. RITUXIMAB [Suspect]
     Indication: MANTLE CELL LYMPHOMA RECURRENT
     Dosage: UNK, SINGLE
     Route: 042
     Dates: start: 20050729, end: 20050729
  2. FLUDARA [Concomitant]
     Indication: PRODUCT USED FOR UNKNOWN INDICATION
     Dosage: UNK
     Route: 065
  3. RITUXIMAB [Suspect]
     Dosage: UNK, SINGLE
     Route: 042
     Dates: start: 20050701, end: 20050701
  4. ZEVALIN [Suspect]
     Indication: MANTLE CELL LYMPHOMA RECURRENT
     Dosage: 0.3 MCI/KG, SINGLE
     Route: 042
     Dates: start: 20050729, end: 20050729

REACTIONS (2)
  - THROMBOCYTOPENIA [None]
  - HAEMORRHAGIC STROKE [None]
